FAERS Safety Report 7235494-X (Version None)
Quarter: 2011Q1

REPORT INFORMATION
  Report Type: 
  Country: None (occurrence: None)
  Receive Date: 20110120
  Receipt Date: 20110118
  Transmission Date: 20110831
  Serious: Yes (Other)
  Sender: FDA-Public Use
  Company Number: US-AMGEN AB-QUU443990

PATIENT

DRUGS (7)
  1. PROLIA [Suspect]
     Dates: start: 20100101
  2. POSTURE D                          /00278001/ [Concomitant]
  3. OCUVITE                            /01053801/ [Concomitant]
  4. HYDROXYZINE [Concomitant]
     Dosage: UNK UNK, QWK
     Route: 048
  5. ATARAX [Concomitant]
     Dosage: 10 UNK, UNK
  6. PROLIA [Suspect]
     Indication: OSTEOPOROSIS POSTMENOPAUSAL
     Dosage: 60 MG, Q6MO
     Route: 058
     Dates: start: 20100812
  7. VESICARE [Concomitant]
     Dosage: UNK UNK, QD
     Route: 048

REACTIONS (2)
  - ABSCESS [None]
  - HERPES SIMPLEX [None]
